FAERS Safety Report 20591537 (Version 7)
Quarter: 2022Q4

REPORT INFORMATION
  Report Type: Report from Study
  Country: CA (occurrence: CA)
  Receive Date: 20220314
  Receipt Date: 20221014
  Transmission Date: 20230113
  Serious: Yes (Hospitalization, Other)
  Sender: FDA-Public Use
  Company Number: CA-OTSUKA-2022_011211

PATIENT
  Age: 25 Year
  Sex: Female

DRUGS (1)
  1. ARIPIPRAZOLE [Suspect]
     Active Substance: ARIPIPRAZOLE
     Indication: Product used for unknown indication
     Dosage: 400 MG, EVERY 3 WEEKS
     Route: 030

REACTIONS (9)
  - Mental disorder [Not Recovered/Not Resolved]
  - Mental disorder [Recovered/Resolved]
  - Mental disorder [Unknown]
  - Suicidal ideation [Not Recovered/Not Resolved]
  - Overdose [Not Recovered/Not Resolved]
  - Depressed mood [Not Recovered/Not Resolved]
  - Sleep disorder [Recovered/Resolved]
  - Inappropriate schedule of product administration [Unknown]
  - Therapy cessation [Unknown]

NARRATIVE: CASE EVENT DATE: 20220822
